FAERS Safety Report 9783318 (Version 1)
Quarter: 2013Q4

REPORT INFORMATION
  Report Type: Spontaneous
  Country: CO (occurrence: CO)
  Receive Date: 20131226
  Receipt Date: 20131226
  Transmission Date: 20140711
  Serious: Yes (Hospitalization)
  Sender: FDA-Public Use
  Company Number: CO-PFIZER INC-2013366277

PATIENT
  Age: 67 Year
  Sex: Male

DRUGS (1)
  1. CARDURAN [Suspect]
     Dosage: 4 MG, DAILY

REACTIONS (1)
  - Prostatic disorder [Unknown]
